FAERS Safety Report 4754612-6 (Version None)
Quarter: 2005Q3

REPORT INFORMATION
  Report Type: 
  Country: None (occurrence: None)
  Receive Date: 20050829
  Receipt Date: 20050826
  Transmission Date: 20060218
  Serious: Yes (Hospitalization)
  Sender: FDA-Public Use
  Company Number: 13082037

PATIENT
  Age: 50 Year
  Sex: Male

DRUGS (3)
  1. VINORELBINE [Suspect]
     Indication: NON-SMALL CELL LUNG CANCER
     Dosage: 30MGM2 CYCLIC
     Route: 042
     Dates: start: 20050517
  2. CETUXIMAB [Suspect]
     Indication: NON-SMALL CELL LUNG CANCER
     Dosage: 250MGM2 WEEKLY
     Route: 042
     Dates: start: 20050517
  3. CISPLATIN [Suspect]
     Indication: NON-SMALL CELL LUNG CANCER
     Dosage: 60MGM2 CYCLIC
     Route: 042
     Dates: start: 20050517

REACTIONS (2)
  - CELLULITIS [None]
  - NEUTROPENIA [None]
